FAERS Safety Report 10406333 (Version 1)
Quarter: 2014Q3

REPORT INFORMATION
  Report Type: Spontaneous
  Country: CH (occurrence: None)
  Receive Date: 20140821
  Receipt Date: 20140821
  Transmission Date: 20150326
  Serious: Yes (Death, Hospitalization)
  Sender: FDA-Public Use
  Company Number: IMP_07839_2014

PATIENT
  Age: 70 Year
  Sex: Female

DRUGS (5)
  1. FUROSEMIDE. [Concomitant]
     Active Substance: FUROSEMIDE
  2. INSULIN [Concomitant]
     Active Substance: INSULIN NOS
  3. HEPARIN [Concomitant]
     Active Substance: HEPARIN SODIUM
  4. METFORMIN [Suspect]
     Active Substance: METFORMIN HYDROCHLORIDE
     Indication: PRODUCT USED FOR UNKNOWN INDICATION
     Dosage: 2500 MG [500 MG AT 8AM, 1,000 MG AT 1PM AND 1,000 MG AT 7PM], (2500 MG, [DAILY])
  5. IRBESARTAN. [Concomitant]
     Active Substance: IRBESARTAN

REACTIONS (19)
  - Renal impairment [None]
  - Chest pain [None]
  - Toxicity to various agents [None]
  - Hyperkalaemia [None]
  - Abdominal pain [None]
  - Lactic acidosis [None]
  - Metabolic acidosis [None]
  - Abdominal pain upper [None]
  - Agitation [None]
  - Cardiac arrest [None]
  - Blood glucose increased [None]
  - Ocular icterus [None]
  - Cardio-respiratory arrest [None]
  - Oedema peripheral [None]
  - Decreased appetite [None]
  - Loss of consciousness [None]
  - Abdominal distension [None]
  - Hypophagia [None]
  - Vomiting [None]
